FAERS Safety Report 20471838 (Version 2)
Quarter: 2022Q1

REPORT INFORMATION
  Report Type: Report from Study
  Country: AU (occurrence: AU)
  Receive Date: 20220214
  Receipt Date: 20220224
  Transmission Date: 20220424
  Serious: Yes (Hospitalization, Other)
  Sender: FDA-Public Use
  Company Number: AU-PFIZER INC-202200247996

PATIENT
  Age: 3 Year
  Sex: Male
  Weight: 19.5 kg

DRUGS (16)
  1. VINCRISTINE SULFATE [Suspect]
     Active Substance: VINCRISTINE SULFATE
     Dosage: UNK
  2. VINCRISTINE SULFATE [Suspect]
     Active Substance: VINCRISTINE SULFATE
     Dosage: TOTAL DOSE ADMINISTERED THIS COURSE 1.1
     Dates: start: 20180821, end: 20180821
  3. TEMSIROLIMUS [Suspect]
     Active Substance: TEMSIROLIMUS
     Dosage: UNK
     Dates: start: 20180524
  4. CYCLOPHOSPHAMIDE [Suspect]
     Active Substance: CYCLOPHOSPHAMIDE
     Dosage: UNK
  5. CYCLOPHOSPHAMIDE [Suspect]
     Active Substance: CYCLOPHOSPHAMIDE
     Dosage: 910 MG TOTAL DOSE ADMINISTERED THIS COURSE
     Dates: start: 20180821, end: 20180821
  6. DACTINOMYCIN [Suspect]
     Active Substance: DACTINOMYCIN
     Dosage: UNK
  7. DACTINOMYCIN [Suspect]
     Active Substance: DACTINOMYCIN
     Dosage: TOTAL DOSE ADMINSTERERED THIS COURSE 1 MG
     Dates: start: 20180821, end: 20180821
  8. BACTRIM [Concomitant]
     Active Substance: SULFAMETHOXAZOLE\TRIMETHOPRIM
     Dosage: UNK
  9. LACTULOSE [Concomitant]
     Active Substance: LACTULOSE
     Dosage: UNK
  10. CEFEPIME [Concomitant]
     Active Substance: CEFEPIME HYDROCHLORIDE
     Dosage: UNK
  11. NILSTAT [NYSTATIN] [Concomitant]
     Dosage: UNK
  12. ONDANSETRON [Concomitant]
     Active Substance: ONDANSETRON
     Dosage: UNK
  13. ACETAMINOPHEN [Concomitant]
     Active Substance: ACETAMINOPHEN
     Dosage: UNK
  14. PEG GRANULOCYTE COLONY STIMULATING FACTOR [Concomitant]
     Dosage: UNK
  15. SODIBIC [Concomitant]
     Dosage: UNK
  16. METOCLOPRAMIDE [Concomitant]
     Active Substance: METOCLOPRAMIDE
     Dosage: UNK

REACTIONS (4)
  - Febrile neutropenia [Recovered/Resolved with Sequelae]
  - Neutrophil count decreased [Recovered/Resolved with Sequelae]
  - Lymphocyte count decreased [Recovered/Resolved with Sequelae]
  - Pyrexia [Recovered/Resolved with Sequelae]

NARRATIVE: CASE EVENT DATE: 20180822
